FAERS Safety Report 9925957 (Version 2)
Quarter: 2014Q1

REPORT INFORMATION
  Report Type: Spontaneous
  Country: US (occurrence: US)
  Receive Date: 20140226
  Receipt Date: 20140226
  Transmission Date: 20141002
  Serious: No
  Sender: FDA-Public Use
  Company Number: US-BRACCO-009646

PATIENT
  Age: 78 Year
  Sex: Female

DRUGS (3)
  1. BETA BLOCKING AGENTS [Concomitant]
  2. ISOVUE 370 [Suspect]
     Indication: CATHETERISATION CARDIAC
     Route: 013
     Dates: start: 20130522, end: 20130522
  3. ATORVASTATIN CALCIUM [Suspect]
     Dates: start: 201304, end: 201305

REACTIONS (2)
  - Hypersensitivity [Recovering/Resolving]
  - Muscular weakness [Recovering/Resolving]
